FAERS Safety Report 11200005 (Version 1)
Quarter: 2015Q2

REPORT INFORMATION
  Report Type: Spontaneous
  Country: US (occurrence: US)
  Receive Date: 20150618
  Receipt Date: 20150618
  Transmission Date: 20150821
  Serious: No
  Sender: FDA-Public Use
  Company Number: US-TAKEDA-2015TUS000298

PATIENT
  Age: 5 Decade
  Sex: Male

DRUGS (2)
  1. OTHER MEDICATIONS [Concomitant]
     Active Substance: UNSPECIFIED INGREDIENT
     Dosage: UNK
  2. ULORIC [Suspect]
     Active Substance: FEBUXOSTAT
     Indication: GOUT
     Dosage: 1 TABLET, QD
     Route: 048

REACTIONS (2)
  - Rash erythematous [Not Recovered/Not Resolved]
  - Rash pruritic [Not Recovered/Not Resolved]
